FAERS Safety Report 22983600 (Version 2)
Quarter: 2024Q3

REPORT INFORMATION
  Report Type: Spontaneous
  Country: US (occurrence: US)
  Receive Date: 20230926
  Receipt Date: 20240921
  Transmission Date: 20241016
  Serious: No
  Sender: AUROBINDO
  Company Number: US-AUROBINDO-AUR-APL-2023-049852

PATIENT
  Age: 65 Year
  Sex: Female
  Weight: 59 kg

DRUGS (3)
  1. ALENDRONATE SODIUM [Suspect]
     Active Substance: ALENDRONATE SODIUM
     Indication: Osteoporosis
     Dosage: 10 MILLIGRAM, EVERY MORNING, 45 MINUTES BEFORE BREAKFAST FOR 3 DAYS CONTINUOUSLY
     Route: 048
     Dates: start: 20230707, end: 20230716
  2. PROPRANOLOL [Concomitant]
     Active Substance: PROPRANOLOL HYDROCHLORIDE
     Indication: Product used for unknown indication
     Dosage: SUSTAINED RELEASE
     Route: 065
  3. ROSUVASTATIN [Concomitant]
     Active Substance: ROSUVASTATIN\ROSUVASTATIN CALCIUM
     Indication: Product used for unknown indication
     Dosage: UNK
     Route: 065

REACTIONS (8)
  - Bladder irritation [Recovering/Resolving]
  - Dizziness [Recovering/Resolving]
  - Dysuria [Unknown]
  - Gait inability [Recovering/Resolving]
  - Oesophageal pain [Recovering/Resolving]
  - Productive cough [Unknown]
  - Throat irritation [Recovering/Resolving]
  - Therapy cessation [Unknown]

NARRATIVE: CASE EVENT DATE: 20230708
